FAERS Safety Report 17895166 (Version 1)
Quarter: 2020Q2

REPORT INFORMATION
  Report Type: Spontaneous
  Country: US (occurrence: US)
  Receive Date: 20200612
  Receipt Date: 20200612
  Transmission Date: 20200714
  Serious: Yes (Hospitalization)
  Sender: FDA-Public Use
  Company Number: None

PATIENT
  Age: 50 Year
  Sex: Female

DRUGS (4)
  1. HERCEPTIN [Suspect]
     Active Substance: TRASTUZUMAB
  2. FAMOTIDINE INJ 10MG/ML [Suspect]
     Active Substance: FAMOTIDINE
     Route: 042
     Dates: start: 20181203
  3. XELODA [Concomitant]
     Active Substance: CAPECITABINE
  4. ZOLEDRONIC ACID [Concomitant]
     Active Substance: ZOLEDRONIC ACID

REACTIONS (3)
  - Vomiting [None]
  - Diarrhoea [None]
  - Dehydration [None]

NARRATIVE: CASE EVENT DATE: 20200528
